FAERS Safety Report 25884018 (Version 1)
Quarter: 2025Q4

REPORT INFORMATION
  Report Type: Spontaneous
  Country: US (occurrence: US)
  Receive Date: 20251006
  Receipt Date: 20251006
  Transmission Date: 20260118
  Serious: Yes (Hospitalization)
  Sender: Phathom Pharmaceuticals
  Company Number: US-PHATHOM PHARMACEUTICALS INC.-2025PHT02771

PATIENT
  Sex: Female
  Weight: 102 kg

DRUGS (11)
  1. VOQUEZNA [Suspect]
     Active Substance: VONOPRAZAN FUMARATE
     Indication: Gastrooesophageal reflux disease
     Dosage: 20 MG, 1X/DAY
     Route: 048
     Dates: start: 20250801
  2. ELIQUIS [Concomitant]
     Active Substance: APIXABAN
  3. BECLOMETHASONE DIPROPIONATE [Concomitant]
     Active Substance: BECLOMETHASONE DIPROPIONATE
  4. TRIAMCINOLONE [Concomitant]
     Active Substance: TRIAMCINOLONE
  5. Clotrim antifungal [Concomitant]
  6. IMITREX [Concomitant]
     Active Substance: SUMATRIPTAN SUCCINATE
  7. TRILEPTAL [Concomitant]
     Active Substance: OXCARBAZEPINE
  8. NEURONTIN [Concomitant]
     Active Substance: GABAPENTIN
  9. FAMOTIDINE [Concomitant]
     Active Substance: FAMOTIDINE
  10. PEPCID [Concomitant]
     Active Substance: FAMOTIDINE
  11. ELAVIL [Concomitant]
     Active Substance: AMITRIPTYLINE HYDROCHLORIDE

REACTIONS (2)
  - Thrombosis [Recovering/Resolving]
  - Product dose omission issue [Recovered/Resolved]

NARRATIVE: CASE EVENT DATE: 20250101
